FAERS Safety Report 4288159-0 (Version None)
Quarter: 2004Q1

REPORT INFORMATION
  Report Type: 
  Country: None (occurrence: None)
  Receive Date: 20040209
  Receipt Date: 20030827
  Transmission Date: 20041129
  Serious: No
  Sender: FDA-Public Use
  Company Number: US-GLAXOSMITHKLINE-A0423726A

PATIENT
  Age: 77 Year
  Sex: Male

DRUGS (4)
  1. PAXIL [Suspect]
     Indication: POST-TRAUMATIC STRESS DISORDER
     Dosage: 40MG PER DAY
     Route: 048
  2. LORAZEPAM [Concomitant]
  3. SIMVASTATIN [Concomitant]
  4. ANTIHISTAMINE [Concomitant]

REACTIONS (1)
  - ABNORMAL DREAMS [None]
